FAERS Safety Report 22532683 (Version 2)
Quarter: 2023Q2

REPORT INFORMATION
  Report Type: Spontaneous
  Country: US (occurrence: US)
  Receive Date: 20230607
  Receipt Date: 20230613
  Transmission Date: 20230722
  Serious: No
  Sender: FDA-Public Use
  Company Number: US-PFIZER INC-PV202300100273

PATIENT
  Age: 65 Year
  Sex: Female

DRUGS (2)
  1. IBRANCE [Suspect]
     Active Substance: PALBOCICLIB
     Indication: Breast cancer metastatic
     Dosage: 100 MG, CYCLIC(ONE TABLET ONCE DAILY ON DAYS 1-21, THEN STOP FOR 7 DAYS, REPEAT CYCLE EVERY 28 DAYS)
     Route: 048
  2. FEMARA [Concomitant]
     Active Substance: LETROZOLE
     Dosage: UNK

REACTIONS (3)
  - Paraesthesia [Unknown]
  - Carpal tunnel syndrome [Unknown]
  - Neoplasm progression [Unknown]
